FAERS Safety Report 7411510-7 (Version None)
Quarter: 2011Q2

REPORT INFORMATION
  Report Type: 
  Country: None (occurrence: None)
  Receive Date: 20110405
  Receipt Date: 20110317
  Transmission Date: 20111010
  Serious: Yes (Death)
  Sender: FDA-Public Use
  Company Number: 2011P1005180

PATIENT
  Age: 27 Year
  Sex: Male

DRUGS (6)
  1. MORPHINE [Suspect]
     Dosage: PO
     Route: 048
  2. TRICYCLIC ANTIDEPRESSANT (NO PREF. NAME) [Suspect]
     Dosage: PO
     Route: 048
  3. ACETAMINOPHEN [Suspect]
     Dosage: PO
     Route: 048
  4. IBUPROFEN [Suspect]
     Dosage: PO
     Route: 048
  5. OXYCONTIN [Suspect]
     Dosage: PO
     Route: 048
  6. DIPHENHYDRAMINE (NO PREF. NAME) [Suspect]
     Dosage: PO
     Route: 048

REACTIONS (1)
  - DRUG ABUSE [None]
